FAERS Safety Report 6187761-9 (Version None)
Quarter: 2009Q2

REPORT INFORMATION
  Report Type: 
  Country: None (occurrence: None)
  Receive Date: 20090511
  Receipt Date: 20090511
  Transmission Date: 20091009
  Serious: Yes (Other)
  Sender: FDA-Public Use
  Company Number: None

PATIENT
  Sex: Male
  Weight: 85.7298 kg

DRUGS (1)
  1. PLAVIX [Suspect]
     Indication: BLOOD DISORDER
     Dosage: 75 MG 1 PER DAY

REACTIONS (2)
  - EYE HAEMORRHAGE [None]
  - GASTRIC DISORDER [None]
